FAERS Safety Report 21418140 (Version 1)
Quarter: 2022Q4

REPORT INFORMATION
  Report Type: Spontaneous
  Country: US (occurrence: None)
  Receive Date: 20221005
  Receipt Date: 20221005
  Transmission Date: 20230113
  Serious: Yes (Other)
  Sender: FDA-Public Use
  Company Number: None

PATIENT
  Age: 21 Year
  Sex: Female
  Weight: 60.75 kg

DRUGS (8)
  1. ATARAX [Suspect]
     Active Substance: HYDROXYZINE HYDROCHLORIDE
     Indication: Anxiety
     Dosage: OTHER QUANTITY : 1 TABLET(S);?FREQUENCY : AS NEEDED;?
     Route: 048
  2. VESICARE [Suspect]
     Active Substance: SOLIFENACIN SUCCINATE
     Indication: Urinary incontinence
     Dosage: OTHER QUANTITY : 1 TABLET(S);?FREQUENCY : EVERY DAY BEFORE NOON;?
     Route: 048
     Dates: start: 20220422
  3. CELEXA (CITALOPRAM) [Concomitant]
  4. FOCALIN XR (DEXMETHYLPHENIDATE) [Concomitant]
  5. ALBUTEROL SULFATE [Concomitant]
     Active Substance: ALBUTEROL SULFATE
  6. PRILOSEC [Concomitant]
     Active Substance: OMEPRAZOLE MAGNESIUM
  7. MELATONIN [Concomitant]
     Active Substance: MELATONIN
  8. CLARITIN [Concomitant]
     Active Substance: LORATADINE

REACTIONS (7)
  - Somnolence [None]
  - Dizziness [None]
  - Confusional state [None]
  - Serotonin syndrome [None]
  - Tremor [None]
  - Drug interaction [None]
  - Fear of injection [None]

NARRATIVE: CASE EVENT DATE: 20221005
